FAERS Safety Report 7898140-8 (Version None)
Quarter: 2011Q4

REPORT INFORMATION
  Report Type: 
  Country: None (occurrence: None)
  Receive Date: 20111107
  Receipt Date: 20111102
  Transmission Date: 20120403
  Serious: Yes (Other)
  Sender: FDA-Public Use
  Company Number: DE-MERCK-1111DEU00006

PATIENT
  Age: 79 Year
  Sex: Female

DRUGS (1)
  1. FOSAMAX [Suspect]
     Indication: OSTEOPOROSIS
     Route: 048
     Dates: start: 20100901, end: 20110201

REACTIONS (4)
  - LOOSE TOOTH [None]
  - GINGIVITIS [None]
  - PAIN IN JAW [None]
  - OSTEITIS [None]
